FAERS Safety Report 8400614-8 (Version None)
Quarter: 2012Q2

REPORT INFORMATION
  Report Type: 
  Country: None (occurrence: None)
  Receive Date: 20120531
  Receipt Date: 20120517
  Transmission Date: 20120825
  Serious: No
  Sender: FDA-Public Use
  Company Number: US-PFIZER INC-2012125534

PATIENT
  Sex: Female

DRUGS (3)
  1. PLACEBO [Suspect]
     Dosage: DAILY
  2. IBUPROFEN [Suspect]
     Indication: PAIN
     Dosage: 800 MG, 3X/DAY
     Route: 048
  3. IBUPROFEN [Suspect]
     Indication: THROMBOSIS

REACTIONS (2)
  - OVERDOSE [None]
  - THROMBOSIS [None]
